FAERS Safety Report 14353215 (Version 1)
Quarter: 2018Q1

REPORT INFORMATION
  Report Type: Spontaneous
  Country: ES (occurrence: ES)
  Receive Date: 20180105
  Receipt Date: 20180105
  Transmission Date: 20180509
  Serious: Yes (Hospitalization, Other)
  Sender: FDA-Public Use
  Company Number: ES-AMGEN-ESPSP2017189133

PATIENT
  Age: 58 Year
  Sex: Female
  Weight: 54 kg

DRUGS (2)
  1. HYDREA [Concomitant]
     Active Substance: HYDROXYUREA
     Indication: LEIOMYOMA
     Dosage: UNK UNK, QD
     Route: 048
  2. ARANESP [Suspect]
     Active Substance: DARBEPOETIN ALFA
     Indication: PRODUCT USED FOR UNKNOWN INDICATION
     Dosage: 10 MG, Q2WK
     Route: 058
     Dates: start: 20170831

REACTIONS (3)
  - Haemodynamic instability [Unknown]
  - Gastrointestinal haemorrhage [Recovered/Resolved]
  - Anaemia [Recovered/Resolved]

NARRATIVE: CASE EVENT DATE: 2017
